FAERS Safety Report 15354769 (Version 3)
Quarter: 2020Q1

REPORT INFORMATION
  Report Type: Spontaneous
  Country: US (occurrence: US)
  Receive Date: 20180906
  Receipt Date: 20200121
  Transmission Date: 20200409
  Serious: Yes (Hospitalization, Other)
  Sender: FDA-Public Use
  Company Number: US-ASTRAZENECA-2018SF09474

PATIENT
  Age: 24037 Day
  Sex: Female
  Weight: 68 kg

DRUGS (63)
  1. NEXIUM [Suspect]
     Active Substance: ESOMEPRAZOLE MAGNESIUM
     Indication: DYSPEPSIA
     Route: 048
     Dates: start: 2009, end: 2017
  2. PANTOPRAZOLE [Suspect]
     Active Substance: PANTOPRAZOLE
     Indication: DYSPEPSIA
     Route: 065
     Dates: start: 2017
  3. PROVENTIL [Concomitant]
     Active Substance: ALBUTEROL
     Indication: ASTHMA
     Dates: start: 2007, end: 2017
  4. AMOXICILLIN. [Concomitant]
     Active Substance: AMOXICILLIN
     Indication: INFECTION
     Dates: start: 2006, end: 2016
  5. ASPIRIN. [Concomitant]
     Active Substance: ASPIRIN
     Route: 048
  6. GABAPENTIN. [Concomitant]
     Active Substance: GABAPENTIN
  7. METOPROLOL. [Concomitant]
     Active Substance: METOPROLOL
  8. OXYBUTYNIN. [Concomitant]
     Active Substance: OXYBUTYNIN CHLORIDE
  9. LORATADINE. [Concomitant]
     Active Substance: LORATADINE
     Dosage: 1 TABLET ONCE A DAY
     Route: 048
  10. CRESTOR [Concomitant]
     Active Substance: ROSUVASTATIN CALCIUM
     Indication: BLOOD CHOLESTEROL INCREASED
     Dates: start: 2007, end: 2017
  11. AMBIEN [Concomitant]
     Active Substance: ZOLPIDEM TARTRATE
     Indication: INSOMNIA
     Dosage: WHEN NEEDED
     Dates: start: 2007, end: 2014
  12. LOSARTAN. [Concomitant]
     Active Substance: LOSARTAN
  13. ZETIA [Concomitant]
     Active Substance: EZETIMIBE
  14. TRAMADOL. [Concomitant]
     Active Substance: TRAMADOL
  15. CARISOPRODOL. [Concomitant]
     Active Substance: CARISOPRODOL
  16. XYZAL [Concomitant]
     Active Substance: LEVOCETIRIZINE DIHYDROCHLORIDE
     Route: 048
  17. CODEINE-GUAIFENESIN [Concomitant]
     Active Substance: CODEINE PHOSPHATE\GUAIFENESIN
     Route: 048
  18. CEFDINIR. [Concomitant]
     Active Substance: CEFDINIR
     Dosage: 300 MG
     Dates: start: 20181220
  19. TAMOXIFEN [Concomitant]
     Active Substance: TAMOXIFEN
     Indication: NEOPLASM MALIGNANT
     Dates: start: 2015, end: 2016
  20. AMLODIPINE [Concomitant]
     Active Substance: AMLODIPINE BESYLATE
     Route: 048
  21. TAMOXIFEN CITRATE. [Concomitant]
     Active Substance: TAMOXIFEN CITRATE
  22. CEPHALEXIN. [Concomitant]
     Active Substance: CEPHALEXIN
  23. DIOVAN [Concomitant]
     Active Substance: VALSARTAN
  24. SODIUM CHLORIDE. [Concomitant]
     Active Substance: SODIUM CHLORIDE
     Route: 045
     Dates: start: 2007, end: 2017
  25. NEXIUM [Suspect]
     Active Substance: ESOMEPRAZOLE MAGNESIUM
     Indication: DYSPEPSIA
     Route: 048
     Dates: start: 20080919
  26. BENZONATATE. [Concomitant]
     Active Substance: BENZONATATE
     Indication: COUGH
     Route: 048
     Dates: start: 2010, end: 2016
  27. SUCRALFATE. [Concomitant]
     Active Substance: SUCRALFATE
  28. FEXOFENADINE [Concomitant]
     Active Substance: FEXOFENADINE HYDROCHLORIDE
     Indication: MULTIPLE ALLERGIES
     Dates: start: 2007, end: 2011
  29. FAMOTIDINE. [Concomitant]
     Active Substance: FAMOTIDINE
     Dates: start: 2016
  30. FLECAINIDE [Concomitant]
     Active Substance: FLECAINIDE
  31. LOVAZA [Concomitant]
     Active Substance: OMEGA-3-ACID ETHYL ESTERS
     Route: 048
  32. FLONASE [Concomitant]
     Active Substance: FLUTICASONE PROPIONATE
  33. HYDROXYZINE [Concomitant]
     Active Substance: HYDROXYZINE HYDROCHLORIDE
  34. CEFUROXIME. [Concomitant]
     Active Substance: CEFUROXIME
  35. PROAIR HFA [Concomitant]
     Active Substance: ALBUTEROL SULFATE
     Indication: ASTHMA
     Dates: start: 2007, end: 2017
  36. ELMIRON [Concomitant]
     Active Substance: PENTOSAN POLYSULFATE SODIUM
     Indication: CYSTITIS INTERSTITIAL
     Dates: start: 2008, end: 2015
  37. ALLOPURINOL. [Concomitant]
     Active Substance: ALLOPURINOL
  38. ENABLEX [Concomitant]
     Active Substance: DARIFENACIN HYDROBROMIDE
     Dosage: 1 DAILY
  39. HYDROXYZINE HYDROCHLORIDE. [Concomitant]
     Active Substance: HYDROXYZINE HYDROCHLORIDE
  40. HYOMAX [Concomitant]
     Active Substance: HYOSCYAMINE SULFATE
  41. FLECAINIDE [Concomitant]
     Active Substance: FLECAINIDE
     Dosage: 100 MG
     Dates: start: 20180104
  42. NEXIUM [Suspect]
     Active Substance: ESOMEPRAZOLE MAGNESIUM
     Indication: DYSPEPSIA
     Route: 048
     Dates: start: 20140102
  43. DETROL [Concomitant]
     Active Substance: TOLTERODINE TARTRATE
  44. RANITIDINE. [Concomitant]
     Active Substance: RANITIDINE
  45. TOPROL XL [Concomitant]
     Active Substance: METOPROLOL SUCCINATE
  46. NASONEX [Concomitant]
     Active Substance: MOMETASONE FUROATE
  47. UTIRA-C [Concomitant]
     Active Substance: HYOSCYAMINE SULFATE\METHENAMINE\METHYLENE BLUE\PHENYL SALICYLATE\SODIUM PHOSPHATE, MONOBASIC, MONOHYDRATE
  48. EFEXOR [Concomitant]
     Active Substance: VENLAFAXINE HYDROCHLORIDE
  49. ADVAIR DISKUS [Concomitant]
     Active Substance: FLUTICASONE PROPIONATE\SALMETEROL XINAFOATE
  50. ONDANSETRON [Concomitant]
     Active Substance: ONDANSETRON
  51. VALSARTAN-HYDROCHLOROTHIAZIDE [Concomitant]
     Active Substance: HYDROCHLOROTHIAZIDE\VALSARTAN
  52. ACETAMINOPHEN. [Concomitant]
     Active Substance: ACETAMINOPHEN
     Route: 048
  53. VENLAFAXINE [Concomitant]
     Active Substance: VENLAFAXINE HYDROCHLORIDE
     Dosage: 37.5 MG
  54. NEXIUM [Suspect]
     Active Substance: ESOMEPRAZOLE MAGNESIUM
     Indication: DYSPEPSIA
     Route: 048
     Dates: start: 2000, end: 2016
  55. NEXIUM [Suspect]
     Active Substance: ESOMEPRAZOLE MAGNESIUM
     Indication: DYSPEPSIA
     Dosage: GENRIC
     Route: 065
  56. CARDURA [Concomitant]
     Active Substance: DOXAZOSIN MESYLATE
  57. SINGULAIR [Concomitant]
     Active Substance: MONTELUKAST SODIUM
     Dosage: 1 DAILY
  58. CHLORHEXIDINE GLUCONATE. [Concomitant]
     Active Substance: CHLORHEXIDINE GLUCONATE
  59. HYDROCODONE BITARTRATE AND ACETAMINOPHEN [Concomitant]
     Active Substance: ACETAMINOPHEN\HYDROCODONE BITARTRATE
  60. BENICAR [Concomitant]
     Active Substance: OLMESARTAN MEDOXOMIL
     Dosage: 40/25 ONE DAILY
  61. AMLODIPINE BESYLATE. [Concomitant]
     Active Substance: AMLODIPINE BESYLATE
  62. AMOXICILLINE [Concomitant]
     Active Substance: AMOXICILLIN
     Dosage: 875-125 MG1 TABLET BY MOUTH TWO TIMES A DAY
     Route: 048
  63. TRICOR [Concomitant]
     Active Substance: FENOFIBRATE

REACTIONS (3)
  - Chronic kidney disease [Not Recovered/Not Resolved]
  - Renal failure [Unknown]
  - Acute kidney injury [Unknown]

NARRATIVE: CASE EVENT DATE: 20130613
